FAERS Safety Report 8985218 (Version 2)
Quarter: 2012Q4

REPORT INFORMATION
  Report Type: 
  Country: FR (occurrence: FR)
  Receive Date: 20121226
  Receipt Date: 20121228
  Transmission Date: 20130627
  Serious: Yes (Death, Hospitalization)
  Sender: FDA-Public Use
  Company Number: FR-PFIZER INC-2012328112

PATIENT
  Age: 87 Year
  Sex: Male

DRUGS (13)
  1. CORDARONE [Suspect]
     Indication: ATRIAL FIBRILLATION
     Dosage: 1 DF, daily
     Route: 048
     Dates: start: 20120807, end: 20121205
  2. PLAVIX [Suspect]
     Indication: DRUG USE FOR UNKNOWN INDICATION
     Dosage: 75 mg, daily
     Route: 048
     Dates: end: 20121205
  3. PRADAXA [Suspect]
     Indication: PULMONARY EMBOLISM
     Dosage: 110 mg, twice a day
     Route: 048
     Dates: start: 20120807, end: 20121205
  4. IXEL [Suspect]
     Indication: ANXIODEPRESSIVE SYNDROME
     Dosage: 100 mg, daily
     Route: 048
     Dates: end: 20121205
  5. MOPRAL [Concomitant]
     Dosage: UNK
  6. STILNOX [Concomitant]
     Dosage: UNK
  7. FINASTERIDE [Concomitant]
     Dosage: UNK
  8. OMEXEL [Concomitant]
     Dosage: UNK
  9. LAMALINE [Concomitant]
     Dosage: UNK
  10. NOVOMIX [Concomitant]
     Dosage: UNK
  11. MACROGOL 4000 [Concomitant]
     Dosage: UNK
  12. ATARAX [Concomitant]
     Dosage: UNK
  13. BISOCE [Concomitant]
     Dosage: UNK

REACTIONS (4)
  - Shock haemorrhagic [Fatal]
  - Cardiogenic shock [Fatal]
  - Muscle haemorrhage [Fatal]
  - Fall [Unknown]
